FAERS Safety Report 4469015-1 (Version None)
Quarter: 2004Q4

REPORT INFORMATION
  Report Type: 
  Country: None (occurrence: None)
  Receive Date: 20041008
  Receipt Date: 20040927
  Transmission Date: 20050328
  Serious: Yes (Other)
  Sender: FDA-Public Use
  Company Number: DE-JNJFOC-20040908957

PATIENT
  Sex: Female

DRUGS (3)
  1. DURAGESIC [Suspect]
     Indication: PAIN
     Route: 062
  2. NOVAMINSULFON [Concomitant]
  3. PARACETAMOL [Concomitant]

REACTIONS (3)
  - HYPOTENSION [None]
  - MEDICATION ERROR [None]
  - PNEUMONIA [None]
